FAERS Safety Report 11576166 (Version 1)
Quarter: 2015Q3

REPORT INFORMATION
  Report Type: Spontaneous
  Country: US (occurrence: None)
  Receive Date: 20150929
  Receipt Date: 20150929
  Transmission Date: 20151125
  Serious: Yes (Hospitalization)
  Sender: FDA-Public Use
  Company Number: None

PATIENT
  Age: 68 Year
  Sex: Male

DRUGS (1)
  1. ATORVASTATIN [Suspect]
     Active Substance: ATORVASTATIN
     Indication: HYPERLIPIDAEMIA
     Dosage: 10 MG PM PO
     Route: 048
     Dates: end: 20150523

REACTIONS (5)
  - Slow response to stimuli [None]
  - Cardio-respiratory arrest [None]
  - Chills [None]
  - Tachycardia [None]
  - Rhabdomyolysis [None]

NARRATIVE: CASE EVENT DATE: 20150522
